FAERS Safety Report 7368788-8 (Version None)
Quarter: 2011Q1

REPORT INFORMATION
  Report Type: 
  Country: None (occurrence: None)
  Receive Date: 20110304
  Receipt Date: 20101029
  Transmission Date: 20110831
  Serious: Yes (Death, Hospitalization, Other)
  Sender: FDA-Public Use
  Company Number: CLOF-10500

PATIENT
  Age: 76 Year
  Sex: Male

DRUGS (18)
  1. CLOFARABINE [Suspect]
     Indication: ACUTE MYELOID LEUKAEMIA
     Dosage: 40 MG/M2, QDX5, INTRAVENOUS
     Route: 042
     Dates: start: 20070129, end: 20070202
  2. LINEZOLID [Concomitant]
  3. PROSCAR [Concomitant]
  4. SPORANOX [Concomitant]
  5. TOPROL-XL [Concomitant]
  6. ZYVOX [Concomitant]
  7. DIFLUCAN [Concomitant]
  8. MAGNESIUM OXIDE (MAGNESIUM OXIDE) [Concomitant]
  9. POTASSIUM (POTASSIUM) [Concomitant]
  10. CYTARABINE [Suspect]
     Indication: ACUTE MYELOID LEUKAEMIA
     Dosage: 1000 MG/M2, QDX5, INTRAVENOUS
     Route: 042
     Dates: start: 20070129, end: 20070202
  11. FLOMAX [Concomitant]
  12. PREDNISONE (PREDNISONE) [Concomitant]
  13. ROXICODONE [Concomitant]
  14. HYDROCORTONE [Concomitant]
  15. SENNA (SENNA ALEXANDRINA) [Concomitant]
  16. ITRACONAZOLE [Concomitant]
  17. GLIPIZIDE SR [Concomitant]
  18. COLACE (DOCUSATE SODIUM) [Concomitant]

REACTIONS (36)
  - ENTEROCOCCAL SEPSIS [None]
  - SPLENIC INFARCTION [None]
  - CYST [None]
  - SINUS DISORDER [None]
  - PERIPHERAL SENSORIMOTOR NEUROPATHY [None]
  - FEBRILE NEUTROPENIA [None]
  - URINARY TRACT INFECTION ENTEROCOCCAL [None]
  - KERATITIS HERPETIC [None]
  - FALL [None]
  - PURPURA [None]
  - DIARRHOEA [None]
  - VISION BLURRED [None]
  - MUSCULAR WEAKNESS [None]
  - POLYP [None]
  - HYPOTENSION [None]
  - FUNGAL INFECTION [None]
  - HERPES DERMATITIS [None]
  - SHIFT TO THE LEFT [None]
  - DRUG ERUPTION [None]
  - ACTINIC KERATOSIS [None]
  - ATELECTASIS [None]
  - PLEURAL EFFUSION [None]
  - HERPES SIMPLEX OPHTHALMIC [None]
  - NORMOCHROMIC NORMOCYTIC ANAEMIA [None]
  - PRESYNCOPE [None]
  - STAPHYLOCOCCAL INFECTION [None]
  - PULMONARY OEDEMA [None]
  - HAEMATEMESIS [None]
  - LOBAR PNEUMONIA [None]
  - BONE MARROW FAILURE [None]
  - CLOSTRIDIUM DIFFICILE COLITIS [None]
  - SQUAMOUS CELL CARCINOMA [None]
  - FATIGUE [None]
  - FAECAL INCONTINENCE [None]
  - URINARY INCONTINENCE [None]
  - DYSPHAGIA [None]
